FAERS Safety Report 12520624 (Version 1)
Quarter: 2016Q3

REPORT INFORMATION
  Report Type: Spontaneous
  Country: GB (occurrence: GB)
  Receive Date: 20160701
  Receipt Date: 20160701
  Transmission Date: 20161109
  Serious: Yes (Other)
  Sender: FDA-Public Use
  Company Number: GB-009507513-1606GBR014502

PATIENT
  Age: 46 Year
  Sex: Male
  Weight: 54.9 kg

DRUGS (5)
  1. EXVIERA [Suspect]
     Active Substance: DASABUVIR
     Indication: ANTIVIRAL TREATMENT
     Dosage: 250 MG, BID
     Dates: start: 20160527
  2. PHOSPHOLIPIDS (UNSPECIFIED) [Concomitant]
     Dosage: 300 MG, QD
  3. LANSOPRAZOLE. [Concomitant]
     Active Substance: LANSOPRAZOLE
  4. RIBAVIRIN. [Suspect]
     Active Substance: RIBAVIRIN
     Indication: ANTIVIRAL TREATMENT
     Dosage: 400 MG MORNING - 600 MG EVENING
     Route: 048
     Dates: start: 20160527
  5. VIEKIRAX [Suspect]
     Active Substance: OMBITASVIR\PARITAPREVIR\RITONAVIR
     Indication: ANTIVIRAL TREATMENT
     Dosage: OMBITASVIR 12.5 MG/ PARITAPREVIR 75 MG/ RITONAVIR 50 MG
     Route: 048
     Dates: start: 20160527

REACTIONS (2)
  - Palpitations [Unknown]
  - Blood electrolytes increased [Recovered/Resolved]

NARRATIVE: CASE EVENT DATE: 20160610
